FAERS Safety Report 11145096 (Version 8)
Quarter: 2017Q2

REPORT INFORMATION
  Report Type: Report from Study
  Country: CA (occurrence: CA)
  Receive Date: 20150528
  Receipt Date: 20170627
  Transmission Date: 20170829
  Serious: Yes (Hospitalization)
  Sender: FDA-Public Use
  Company Number: CA-INCYTE CORPORATION-2014IN000062

PATIENT

DRUGS (13)
  1. JAKAVI [Suspect]
     Active Substance: RUXOLITINIB
     Indication: MYELOFIBROSIS
     Dosage: 5 MG, BID
     Route: 048
     Dates: start: 20131011
  2. ALLOPURINOL. [Concomitant]
     Active Substance: ALLOPURINOL
     Dosage: UNK
     Route: 065
  3. ALLOPURINOL. [Concomitant]
     Active Substance: ALLOPURINOL
     Dosage: UNK
     Route: 065
  4. ALLOPURINOL. [Concomitant]
     Active Substance: ALLOPURINOL
     Route: 065
  5. ALLOPURINOL. [Concomitant]
     Active Substance: ALLOPURINOL
     Dosage: UNK
     Route: 065
  6. ALLOPURINOL. [Concomitant]
     Active Substance: ALLOPURINOL
     Indication: GOUT
     Dosage: UNK
     Route: 065
  7. ALLOPURINOL. [Concomitant]
     Active Substance: ALLOPURINOL
     Dosage: UNK
     Route: 065
  8. JAKAVI [Suspect]
     Active Substance: RUXOLITINIB
     Dosage: 5 MG, BID
     Route: 048
     Dates: start: 20150811, end: 20160704
  9. DITROPAN [Concomitant]
     Active Substance: OXYBUTYNIN CHLORIDE
     Indication: PRODUCT USED FOR UNKNOWN INDICATION
     Dosage: UNK
     Route: 065
  10. WATER PILLS [Concomitant]
     Active Substance: UNSPECIFIED INGREDIENT
     Indication: PRODUCT USED FOR UNKNOWN INDICATION
     Dosage: UNK
     Route: 065
  11. JAKAVI [Suspect]
     Active Substance: RUXOLITINIB
     Dosage: 5 MG, BID
     Route: 048
     Dates: start: 20161229
  12. OMEGA 3 [Concomitant]
     Active Substance: OMEGA-3 FATTY ACIDS
     Indication: PRODUCT USED FOR UNKNOWN INDICATION
     Dosage: UNK
     Route: 065
  13. ALLOPURINOL. [Concomitant]
     Active Substance: ALLOPURINOL
     Route: 065

REACTIONS (17)
  - Dehydration [Unknown]
  - Pneumonia [Recovered/Resolved]
  - Vulvovaginal rash [Recovered/Resolved]
  - Flatulence [Not Recovered/Not Resolved]
  - White blood cell count decreased [Unknown]
  - Abnormal faeces [Unknown]
  - Renal impairment [Recovering/Resolving]
  - Peripheral swelling [Recovering/Resolving]
  - Infrequent bowel movements [Unknown]
  - Malaise [Unknown]
  - Lip dry [Unknown]
  - Vulvovaginal pruritus [Not Recovered/Not Resolved]
  - Blister [Unknown]
  - Haemoglobin decreased [Unknown]
  - Diarrhoea [Not Recovered/Not Resolved]
  - Abdominal discomfort [Unknown]
  - Pain in extremity [Unknown]

NARRATIVE: CASE EVENT DATE: 20140207
